FAERS Safety Report 14185341 (Version 2)
Quarter: 2017Q4

REPORT INFORMATION
  Report Type: Spontaneous
  Country: US (occurrence: US)
  Receive Date: 20171114
  Receipt Date: 20171117
  Transmission Date: 20180321
  Serious: Yes (Hospitalization, Other)
  Sender: FDA-Public Use
  Company Number: US-DRREDDYS-USA/USA/17/0094549

PATIENT
  Age: 9 Year
  Sex: Female

DRUGS (5)
  1. SIROLIMUS. [Suspect]
     Active Substance: SIROLIMUS
     Indication: IMMUNOSUPPRESSANT DRUG THERAPY
     Dosage: GOAL 6-8 NG/ML
     Route: 065
  2. TACROLIMUS. [Suspect]
     Active Substance: TACROLIMUS
     Indication: IMMUNOSUPPRESSANT DRUG THERAPY
     Dosage: GOAL 4-6 NG/ML
     Route: 065
  3. TACROLIMUS. [Suspect]
     Active Substance: TACROLIMUS
     Indication: IMMUNOSUPPRESSANT DRUG THERAPY
     Dosage: GOAL 2-4 NG/ML
     Route: 065
  4. TACROLIMUS. [Suspect]
     Active Substance: TACROLIMUS
     Indication: IMMUNOSUPPRESSANT DRUG THERAPY
     Dosage: GOAL 8-10 NG/ML
     Route: 065
  5. AZATHIOPRINE. [Suspect]
     Active Substance: AZATHIOPRINE
     Indication: IMMUNOSUPPRESSANT DRUG THERAPY
     Route: 065

REACTIONS (12)
  - Post transplant lymphoproliferative disorder [Recovering/Resolving]
  - Nephropathy [Unknown]
  - Psoriasis [Unknown]
  - Dermatitis [Unknown]
  - Eczema [Unknown]
  - Respiratory symptom [Unknown]
  - Nephrotic syndrome [Unknown]
  - Epstein-Barr virus infection [Recovering/Resolving]
  - Myalgia [Unknown]
  - Autoimmune disorder [Unknown]
  - Enteritis [Unknown]
  - Renal impairment [Unknown]
